FAERS Safety Report 9011991 (Version 1)
Quarter: 2012Q4

REPORT INFORMATION
  Report Type: Spontaneous
  Country: FR (occurrence: None)
  Receive Date: 20121228
  Receipt Date: 20121228
  Transmission Date: 20130627
  Serious: Yes (Hospitalization)
  Sender: FDA-Public Use
  Company Number: DKLU1087392

PATIENT
  Age: 50 Year
  Sex: Male

DRUGS (16)
  1. ONFI [Suspect]
     Indication: CONVULSION
     Route: 048
     Dates: start: 20121005, end: 20121023
  2. KEPPRA [Suspect]
     Indication: CONVULSION
     Route: 048
     Dates: start: 20121005, end: 20121023
  3. KEPPRA [Suspect]
     Indication: CONVULSION
     Dates: start: 20121024, end: 20121028
  4. KEPPRA [Suspect]
     Indication: CONVULSION
     Dates: start: 20121029, end: 20121031
  5. KEPPRA [Suspect]
     Indication: CONVULSION
     Route: 048
     Dates: start: 20121101, end: 20121109
  6. CISPLATINE [Suspect]
     Indication: SMALL CELL LUNG CANCER STAGE UNSPECIFIED
     Route: 042
     Dates: start: 20121005, end: 20121007
  7. ETOPOSIDE [Suspect]
     Indication: SMALL CELL LUNG CANCER STAGE UNSPECIFIED
     Route: 042
     Dates: start: 20121005, end: 20121007
  8. CARDENSIEL (BISOPROLOL FUMARATE) [Concomitant]
  9. KARDEGIC (ACETYLSALICYLATE LYSINE) [Concomitant]
  10. TRIATEC (PANADEINE CO) [Concomitant]
  11. MACROGOL (MACROGOL) [Concomitant]
  12. METHYLPREDNISOLONE (METHYLPREDNISOLONE) [Concomitant]
  13. ETOPOSIDE (ETOPOSIDE) [Concomitant]
  14. CISPLATIN (CISPLATIN) [Concomitant]
  15. DOXORUBICIN (DOXORUBICIN) [Concomitant]
  16. CYCLOPHOSPHAMIDE (CYCLOPHOSPHAMIDE) [Concomitant]

REACTIONS (7)
  - Hepatitis acute [None]
  - Cholestasis [None]
  - Hepatocellular injury [None]
  - Metastases to bone [None]
  - Convulsion [None]
  - Drug intolerance [None]
  - Metastases to central nervous system [None]
